FAERS Safety Report 7832867-9 (Version None)
Quarter: 2011Q4

REPORT INFORMATION
  Report Type: 
  Country: None (occurrence: None)
  Receive Date: 20111024
  Receipt Date: 20111020
  Transmission Date: 20120403
  Serious: Yes (Hospitalization)
  Sender: FDA-Public Use
  Company Number: US-BRISTOL-MYERS SQUIBB COMPANY-16182313

PATIENT
  Age: 51 Year
  Sex: Male
  Weight: 112 kg

DRUGS (6)
  1. CISPLATIN [Suspect]
     Indication: LARYNGEAL CANCER
     Dosage: LAST DOSE:11JUL2008; TOTAL COURSES TO DATE:2
     Dates: start: 20081013
  2. OXYCODONE HCL [Concomitant]
  3. LEVAQUIN [Concomitant]
  4. FENTANYL [Concomitant]
  5. CEFEPIME [Concomitant]
  6. MORPHINE SULFATE [Concomitant]

REACTIONS (8)
  - ANAEMIA [None]
  - COUGH [None]
  - WHITE BLOOD CELL COUNT DECREASED [None]
  - PYREXIA [None]
  - LYMPHOCYTE COUNT DECREASED [None]
  - NEUTROPHIL COUNT DECREASED [None]
  - DEHYDRATION [None]
  - DYSPHAGIA [None]
